FAERS Safety Report 11792959 (Version 26)
Quarter: 2020Q4

REPORT INFORMATION
  Report Type: Other
  Country: CA (occurrence: CA)
  Receive Date: 20151202
  Receipt Date: 20201008
  Transmission Date: 20210113
  Serious: Yes (Hospitalization, Other)
  Sender: FDA-Public Use
  Company Number: CA-ROCHE-1671443

PATIENT
  Age: 59 Year
  Sex: Female

DRUGS (16)
  1. XOLAIR [Suspect]
     Active Substance: OMALIZUMAB
     Route: 058
     Dates: start: 20170720
  2. XOLAIR [Suspect]
     Active Substance: OMALIZUMAB
     Route: 058
     Dates: start: 20181018
  3. XOLAIR [Suspect]
     Active Substance: OMALIZUMAB
     Route: 058
  4. XOLAIR [Suspect]
     Active Substance: OMALIZUMAB
     Indication: ASTHMA
     Route: 058
     Dates: start: 20120223
  5. XOLAIR [Suspect]
     Active Substance: OMALIZUMAB
     Route: 058
     Dates: start: 20170622
  6. XOLAIR [Suspect]
     Active Substance: OMALIZUMAB
     Route: 058
     Dates: start: 20190717
  7. SYMBICORT [Concomitant]
     Active Substance: BUDESONIDE\FORMOTEROL FUMARATE DIHYDRATE
     Indication: PRODUCT USED FOR UNKNOWN INDICATION
     Dosage: 1 DF, QW
     Route: 065
  8. XOLAIR [Suspect]
     Active Substance: OMALIZUMAB
     Route: 058
     Dates: start: 20170413
  9. XOLAIR [Suspect]
     Active Substance: OMALIZUMAB
     Route: 058
     Dates: start: 20180325
  10. XOLAIR [Suspect]
     Active Substance: OMALIZUMAB
     Route: 058
     Dates: start: 20181002
  11. XOLAIR [Suspect]
     Active Substance: OMALIZUMAB
     Route: 058
     Dates: start: 20161031
  12. XOLAIR [Suspect]
     Active Substance: OMALIZUMAB
     Route: 058
     Dates: start: 20180223
  13. XOLAIR [Suspect]
     Active Substance: OMALIZUMAB
     Route: 058
     Dates: start: 20181117
  14. XOLAIR [Suspect]
     Active Substance: OMALIZUMAB
     Route: 058
     Dates: start: 20170607
  15. XOLAIR [Suspect]
     Active Substance: OMALIZUMAB
     Route: 058
     Dates: start: 20180916
  16. XOLAIR [Suspect]
     Active Substance: OMALIZUMAB
     Route: 058

REACTIONS (25)
  - Hypersensitivity [Unknown]
  - Chest pain [Unknown]
  - Nausea [Unknown]
  - Drug ineffective [Unknown]
  - Obstructive airways disorder [Unknown]
  - Productive cough [Unknown]
  - Asthma [Not Recovered/Not Resolved]
  - Fatigue [Unknown]
  - Helicobacter infection [Unknown]
  - Fluid retention [Unknown]
  - Abdominal pain [Unknown]
  - Inappropriate schedule of product administration [Unknown]
  - Incorrect dose administered [Unknown]
  - Respiratory disorder [Unknown]
  - Illness [Unknown]
  - Deep vein thrombosis [Unknown]
  - Migraine [Unknown]
  - Peripheral swelling [Not Recovered/Not Resolved]
  - Ligament sprain [Recovering/Resolving]
  - Vomiting [Unknown]
  - Cough [Recovering/Resolving]
  - Suicidal ideation [Unknown]
  - Post procedural cellulitis [Unknown]
  - Headache [Not Recovered/Not Resolved]
  - Oedema peripheral [Unknown]

NARRATIVE: CASE EVENT DATE: 2015
